FAERS Safety Report 9350024 (Version 1)
Quarter: 2013Q2

REPORT INFORMATION
  Report Type: Report from Study
  Country: NL (occurrence: NL)
  Receive Date: 20130615
  Receipt Date: 20130615
  Transmission Date: 20140414
  Serious: Yes (Death, Life-Threatening, Hospitalization, Other)
  Sender: FDA-Public Use
  Company Number: NL-GENZYME-CLOF-1002655

PATIENT
  Age: 16 Year
  Sex: Female

DRUGS (9)
  1. EVOLTRA [Suspect]
     Indication: ACUTE MYELOID LEUKAEMIA RECURRENT
     Dosage: 40 MG/M2, UNK
     Route: 065
     Dates: start: 20130509, end: 20130513
  2. EVOLTRA [Suspect]
     Dosage: UNK, TERMINAL TREATMENT
     Route: 065
     Dates: start: 20130514, end: 20130516
  3. CYTARABINE [Suspect]
     Indication: ACUTE MYELOID LEUKAEMIA RECURRENT
     Dosage: 2 G/M2, QD
     Route: 065
     Dates: start: 20130509, end: 20130513
  4. CYTARABINE [Suspect]
     Dosage: UNK, TERMINAL TREATMENT
     Route: 065
     Dates: start: 20130514, end: 20130516
  5. DAUNORUBICIN [Suspect]
     Indication: ACUTE MYELOID LEUKAEMIA RECURRENT
     Dosage: 60 MG/M2, QD, DAY 1-3-5
     Route: 065
     Dates: start: 20130509, end: 20130513
  6. DAUNORUBICIN [Suspect]
     Dosage: UNK, TERMINAL TREATMENT
     Route: 065
     Dates: start: 20130514, end: 20130516
  7. AMBISOME [Concomitant]
     Indication: ANTIFUNGAL PROPHYLAXIS
     Dosage: UNK
     Route: 065
     Dates: start: 201305
  8. ALLOPURINOL [Concomitant]
     Indication: PRODUCT USED FOR UNKNOWN INDICATION
     Dosage: UNK
     Route: 065
  9. TAZOCIN [Concomitant]
     Indication: PROPHYLAXIS
     Dosage: UNK
     Route: 065
     Dates: start: 201305

REACTIONS (5)
  - Cardiovascular insufficiency [Fatal]
  - Systemic inflammatory response syndrome [Fatal]
  - Respiratory failure [Unknown]
  - Tumour lysis syndrome [Unknown]
  - Renal failure [Unknown]
